FAERS Safety Report 22658119 (Version 1)
Quarter: 2023Q2

REPORT INFORMATION
  Report Type: Spontaneous
  Country: US (occurrence: US)
  Receive Date: 20230630
  Receipt Date: 20230630
  Transmission Date: 20230722
  Serious: No
  Sender: FDA-Public Use
  Company Number: US-BRISTOL-MYERS SQUIBB COMPANY-2023-091644

PATIENT
  Age: 80 Year
  Sex: Female
  Weight: 71.66 kg

DRUGS (1)
  1. POMALYST [Suspect]
     Active Substance: POMALIDOMIDE
     Indication: Plasma cell myeloma
     Dosage: FREQUENCY:  21DON7DOFF
     Route: 048

REACTIONS (2)
  - Peripheral swelling [Unknown]
  - Pain in extremity [Unknown]
